FAERS Safety Report 8100972-8 (Version None)
Quarter: 2012Q1

REPORT INFORMATION
  Report Type: 
  Country: None (occurrence: None)
  Receive Date: 20120129
  Receipt Date: 20111020
  Transmission Date: 20120608
  Serious: No
  Sender: FDA-Public Use
  Company Number: US-ABBOTT-11P-163-0867008-00

PATIENT
  Sex: Female

DRUGS (3)
  1. HUMIRA [Suspect]
     Indication: CROHN'S DISEASE
     Route: 058
     Dates: start: 20111013
  2. FLAGYL [Concomitant]
     Indication: CROHN'S DISEASE
     Dosage: NOT REPORTED.
     Dates: start: 20111001, end: 20111018
  3. FERROUS SULFATE TAB [Concomitant]
     Indication: CROHN'S DISEASE
     Dosage: NOT REPORTED.
     Dates: start: 20111014, end: 20111018

REACTIONS (1)
  - NAUSEA [None]
